FAERS Safety Report 22175508 (Version 2)
Quarter: 2024Q3

REPORT INFORMATION
  Report Type: Spontaneous
  Country: IT (occurrence: IT)
  Receive Date: 20230405
  Receipt Date: 20240708
  Transmission Date: 20241017
  Serious: Yes (Other)
  Sender: AUROBINDO
  Company Number: IT-SA-2023SA092175

PATIENT
  Age: 37 Year
  Sex: Male

DRUGS (5)
  1. CIPROFLOXACIN [Suspect]
     Active Substance: CIPROFLOXACIN
     Indication: Bacterial infection
     Dosage: 500 MILLIGRAM, TWO TIMES A DAY
     Route: 048
  2. CIPROFLOXACIN [Suspect]
     Active Substance: CIPROFLOXACIN
     Indication: Antiinflammatory therapy
  3. DEXIBUPROFEN [Suspect]
     Active Substance: DEXIBUPROFEN
     Indication: Antiinflammatory therapy
     Dosage: 400 MILLIGRAM, TWO TIMES A DAY
     Route: 048
  4. Ibrufen [Concomitant]
     Indication: Product used for unknown indication
     Dosage: UNK
     Route: 048
  5. PANTOPRAZOLE SODIUM [Concomitant]
     Active Substance: PANTOPRAZOLE SODIUM
     Indication: Prophylaxis
     Dosage: 20 MILLIGRAM, ONCE A DAY
     Route: 048

REACTIONS (6)
  - Tendon pain [Recovering/Resolving]
  - Dyspnoea [Recovering/Resolving]
  - Fatigue [Recovering/Resolving]
  - Headache [Recovering/Resolving]
  - Renal pain [Recovering/Resolving]
  - Myalgia [Recovering/Resolving]
